FAERS Safety Report 11306232 (Version 2)
Quarter: 2015Q3

REPORT INFORMATION
  Report Type: Spontaneous
  Country: DE (occurrence: DE)
  Receive Date: 20150723
  Receipt Date: 20150727
  Transmission Date: 20151125
  Serious: Yes (Hospitalization, Other)
  Sender: FDA-Public Use
  Company Number: DE-PFIZER INC-049-0073-M0000002

PATIENT
  Age: 68 Year
  Sex: Male

DRUGS (6)
  1. DEXAMETHASONE ACETATE [Interacting]
     Active Substance: DEXAMETHASONE ACETATE
     Indication: PARTIAL SEIZURES
  2. PHENYTOIN. [Interacting]
     Active Substance: PHENYTOIN
     Indication: BRAIN OEDEMA
  3. PHENYTOIN. [Suspect]
     Active Substance: PHENYTOIN
     Indication: PARTIAL SEIZURES
     Route: 065
  4. CEFTRIAXONE SODIUM. [Concomitant]
     Active Substance: CEFTRIAXONE SODIUM
     Indication: RESPIRATORY TRACT INFECTION
  5. PREDNISONE. [Concomitant]
     Active Substance: PREDNISONE
  6. DEXAMETHASONE ACETATE [Interacting]
     Active Substance: DEXAMETHASONE ACETATE
     Indication: HORMONE REPLACEMENT THERAPY

REACTIONS (3)
  - Drug interaction [Unknown]
  - Respiratory failure [Recovered/Resolved]
  - Drug reaction with eosinophilia and systemic symptoms [Recovered/Resolved]
